FAERS Safety Report 5953643-8 (Version None)
Quarter: 2008Q4

REPORT INFORMATION
  Report Type: 
  Country: None (occurrence: None)
  Receive Date: 20081114
  Receipt Date: 20081031
  Transmission Date: 20090506
  Serious: Yes (Other)
  Sender: FDA-Public Use
  Company Number: B0545259A

PATIENT
  Age: 47 Year
  Sex: Male

DRUGS (7)
  1. EPIVIR [Suspect]
     Indication: HIV INFECTION
     Route: 048
     Dates: start: 20040729, end: 20050617
  2. ZIAGEN [Suspect]
     Indication: HIV INFECTION
     Route: 048
     Dates: start: 20040729, end: 20050617
  3. KIVEXA [Suspect]
     Indication: HIV INFECTION
     Route: 065
     Dates: end: 20060503
  4. TELZIR [Suspect]
     Indication: HIV INFECTION
     Route: 048
  5. KALETRA [Suspect]
     Indication: HIV INFECTION
     Route: 065
     Dates: start: 20040729, end: 20050617
  6. NORVIR [Suspect]
     Indication: HIV INFECTION
     Route: 048
  7. TRUVADA [Suspect]
     Indication: HIV INFECTION
     Route: 048
     Dates: start: 20060504

REACTIONS (3)
  - DRUG INTOLERANCE [None]
  - MITOCHONDRIAL CYTOPATHY [None]
  - MYOSITIS [None]
